FAERS Safety Report 13412422 (Version 2)
Quarter: 2017Q4

REPORT INFORMATION
  Report Type: Spontaneous
  Country: US (occurrence: US)
  Receive Date: 20170406
  Receipt Date: 20171123
  Transmission Date: 20180320
  Serious: No
  Sender: FDA-Public Use
  Company Number: US-JNJFOC-20170310615

PATIENT
  Age: 6 Year
  Sex: Male

DRUGS (12)
  1. RISPERDAL [Suspect]
     Active Substance: RISPERIDONE
     Indication: ATTENTION DEFICIT/HYPERACTIVITY DISORDER
     Dosage: WITH VARYING DOSES OF 0.25 AND 0.5 MG
     Route: 048
     Dates: start: 20111212, end: 20120717
  2. RISPERDAL [Suspect]
     Active Substance: RISPERIDONE
     Indication: AFFECTIVE DISORDER
     Dosage: WITH VARYING DOSES OF 0.25 AND 0.5 MG
     Route: 048
     Dates: start: 20071030, end: 20101116
  3. RISPERIDONE. [Suspect]
     Active Substance: RISPERIDONE
     Indication: CONDUCT DISORDER
     Dosage: WITH VARYING DOSES OF 0.25 AND 0.5 MG
     Route: 048
     Dates: start: 20111212, end: 20120717
  4. RISPERIDONE. [Suspect]
     Active Substance: RISPERIDONE
     Indication: AFFECTIVE DISORDER
     Dosage: WITH VARYING DOSES OF 0.25 AND 0.5 MG
     Route: 048
     Dates: start: 20071030, end: 20101116
  5. RISPERIDONE. [Suspect]
     Active Substance: RISPERIDONE
     Indication: AFFECTIVE DISORDER
     Dosage: WITH VARYING DOSES OF 0.25 AND 0.5 MG
     Route: 048
     Dates: start: 20111212, end: 20120717
  6. RISPERDAL [Suspect]
     Active Substance: RISPERIDONE
     Indication: CONDUCT DISORDER
     Dosage: WITH VARYING DOSES OF 0.25 AND 0.5 MG
     Route: 048
     Dates: start: 20071030, end: 20101116
  7. RISPERIDONE. [Suspect]
     Active Substance: RISPERIDONE
     Indication: CONDUCT DISORDER
     Dosage: WITH VARYING DOSES OF 0.25 AND 0.5 MG
     Route: 048
     Dates: start: 20071030, end: 20101116
  8. RISPERIDONE. [Suspect]
     Active Substance: RISPERIDONE
     Indication: ATTENTION DEFICIT/HYPERACTIVITY DISORDER
     Dosage: WITH VARYING DOSES OF 0.25 AND 0.5 MG
     Route: 048
     Dates: start: 20071030, end: 20101116
  9. RISPERDAL [Suspect]
     Active Substance: RISPERIDONE
     Indication: ATTENTION DEFICIT/HYPERACTIVITY DISORDER
     Dosage: WITH VARYING DOSES OF 0.25 AND 0.5 MG
     Route: 048
     Dates: start: 20071030, end: 20101116
  10. RISPERIDONE. [Suspect]
     Active Substance: RISPERIDONE
     Indication: ATTENTION DEFICIT/HYPERACTIVITY DISORDER
     Dosage: WITH VARYING DOSES OF 0.25 AND 0.5 MG
     Route: 048
     Dates: start: 20111212, end: 20120717
  11. RISPERDAL [Suspect]
     Active Substance: RISPERIDONE
     Indication: CONDUCT DISORDER
     Dosage: WITH VARYING DOSES OF 0.25 AND 0.5 MG
     Route: 048
     Dates: start: 20111212, end: 20120717
  12. RISPERDAL [Suspect]
     Active Substance: RISPERIDONE
     Indication: AFFECTIVE DISORDER
     Dosage: WITH VARYING DOSES OF 0.25 AND 0.5 MG
     Route: 048
     Dates: start: 20111212, end: 20120717

REACTIONS (4)
  - Off label use [Unknown]
  - Emotional disorder [Unknown]
  - Product use in unapproved indication [Unknown]
  - Gynaecomastia [Unknown]

NARRATIVE: CASE EVENT DATE: 20071030
